FAERS Safety Report 14302782 (Version 1)
Quarter: 2017Q4

REPORT INFORMATION
  Report Type: Spontaneous
  Country: US (occurrence: US)
  Receive Date: 20171219
  Receipt Date: 20171219
  Transmission Date: 20180321
  Serious: Yes (Hospitalization)
  Sender: FDA-Public Use
  Company Number: None

PATIENT
  Age: 3 Year
  Sex: Male
  Weight: 16.4 kg

DRUGS (5)
  1. VINCRISTINE SULFATE. [Suspect]
     Active Substance: VINCRISTINE SULFATE
     Dates: end: 20171110
  2. DEXAMETHASONE. [Suspect]
     Active Substance: DEXAMETHASONE
     Dates: end: 20171113
  3. CYTARABINE. [Suspect]
     Active Substance: CYTARABINE
     Dates: end: 20171025
  4. ONCASPAR [Suspect]
     Active Substance: PEGASPARGASE
     Dates: end: 20171029
  5. METHOTREXATE. [Suspect]
     Active Substance: METHOTREXATE
     Dates: end: 20171103

REACTIONS (4)
  - Tachycardia [None]
  - Hypotension [None]
  - Escherichia test positive [None]
  - Febrile neutropenia [None]

NARRATIVE: CASE EVENT DATE: 20171114
